FAERS Safety Report 8604699-5 (Version None)
Quarter: 2012Q3

REPORT INFORMATION
  Report Type: 
  Country: None (occurrence: None)
  Receive Date: 20120820
  Receipt Date: 20120816
  Transmission Date: 20120928
  Serious: Yes (Other)
  Sender: FDA-Public Use
  Company Number: PHHY2012CA046381

PATIENT
  Sex: Female

DRUGS (2)
  1. ZOLEDRONOC ACID [Suspect]
     Indication: OSTEOPOROSIS
     Dosage: UNK UKN, UNK
     Route: 042
     Dates: start: 20100730
  2. ZOLEDRONOC ACID [Suspect]
     Dosage: UNK UKN, UNK
     Route: 042
     Dates: start: 20110804

REACTIONS (4)
  - HAEMOGLOBIN DECREASED [None]
  - HEARING IMPAIRED [None]
  - GLOMERULAR FILTRATION RATE DECREASED [None]
  - RED BLOOD CELL SEDIMENTATION RATE INCREASED [None]
